FAERS Safety Report 7498753-1 (Version None)
Quarter: 2011Q2

REPORT INFORMATION
  Report Type: 
  Country: None (occurrence: None)
  Receive Date: 20110524
  Receipt Date: 20110520
  Transmission Date: 20111010
  Serious: No
  Sender: FDA-Public Use
  Company Number: US-PFIZER INC-2011110191

PATIENT
  Sex: Male
  Weight: 74.8 kg

DRUGS (1)
  1. LIPITOR [Suspect]
     Dosage: 20 MG, DAILY
     Route: 048
     Dates: start: 20110301

REACTIONS (1)
  - EPISTAXIS [None]
